FAERS Safety Report 4947030-9 (Version None)
Quarter: 2006Q1

REPORT INFORMATION
  Report Type: 
  Country: None (occurrence: None)
  Receive Date: 20060317
  Receipt Date: 20060102
  Transmission Date: 20060701
  Serious: Yes (Hospitalization)
  Sender: FDA-Public Use
  Company Number: 2006SE00035

PATIENT
  Age: 80 Year
  Sex: Male

DRUGS (4)
  1. BLOPRESS TABLETS 8 [Suspect]
     Indication: HYPERTENSION
     Route: 048
     Dates: start: 20050810, end: 20051130
  2. ASPIRIN [Suspect]
     Route: 048
  3. MOBIC [Concomitant]
     Route: 048
  4. OPALMON [Concomitant]
     Route: 048

REACTIONS (1)
  - HYPOCALCAEMIA [None]
